FAERS Safety Report 8269980 (Version 2)
Quarter: 2012Q4

REPORT INFORMATION
  Report Type: 
  Country: TH (occurrence: TH)
  Receive Date: 20111201
  Receipt Date: 20120917
  Transmission Date: 20130627
  Serious: Yes (Hospitalization)
  Sender: FDA-Public Use
  Company Number: TH-JNJFOC-20111110833

PATIENT
  Age: 77 Year
  Sex: Female

DRUGS (1)
  1. CRAVIT [Suspect]
     Indication: PRODUCT USED FOR UNKNOWN INDICATION
     Route: 048
     Dates: start: 20110306, end: 20110306

REACTIONS (2)
  - Chest discomfort [Recovered/Resolved]
  - Pruritus [Recovered/Resolved]
